FAERS Safety Report 5055241-X (Version None)
Quarter: 2006Q3

REPORT INFORMATION
  Report Type: 
  Country: None (occurrence: None)
  Receive Date: 20060714
  Receipt Date: 20060704
  Transmission Date: 20061208
  Serious: Yes (Other)
  Sender: FDA-Public Use
  Company Number: 2006080099

PATIENT
  Sex: Male

DRUGS (3)
  1. LYRICA [Suspect]
     Indication: NEURALGIA
     Dosage: 600 MG (1 D), ORAL
     Route: 048
     Dates: start: 20060301, end: 20060601
  2. ALPRAZOLAM [Concomitant]
  3. CARISOPRODOL [Concomitant]

REACTIONS (6)
  - ACNE [None]
  - C-REACTIVE PROTEIN INCREASED [None]
  - ERYSIPELAS [None]
  - HYPERAESTHESIA [None]
  - OEDEMA PERIPHERAL [None]
  - RASH [None]
